FAERS Safety Report 22309814 (Version 1)
Quarter: 2023Q2

REPORT INFORMATION
  Report Type: Spontaneous
  Country: US (occurrence: None)
  Receive Date: 20230510
  Receipt Date: 20230510
  Transmission Date: 20230722
  Serious: Yes (Death)
  Sender: FDA-Public Use
  Company Number: None

PATIENT
  Age: 73 Year
  Sex: Male
  Weight: 92.99 kg

DRUGS (5)
  1. IMFINZI [Suspect]
     Active Substance: DURVALUMAB
     Indication: Lung carcinoma cell type unspecified stage 0
     Dosage: OTHER FREQUENCY : EVERY 3 WEEKS;?
     Route: 048
  2. Carboplatin Intravenous [Concomitant]
  3. Zofran [Concomitant]
  4. ASPIRIN [Concomitant]
     Active Substance: ASPIRIN
  5. FIBER [Concomitant]

REACTIONS (1)
  - Death [None]
